FAERS Safety Report 17508462 (Version 3)
Quarter: 2020Q2

REPORT INFORMATION
  Report Type: Spontaneous
  Country: IT (occurrence: IT)
  Receive Date: 20200306
  Receipt Date: 20200403
  Transmission Date: 20200713
  Serious: Yes (Hospitalization, Other)
  Sender: FDA-Public Use
  Company Number: IT-ACCORD-174693

PATIENT
  Age: 26 Year
  Sex: Male

DRUGS (5)
  1. LURASIDONE [Suspect]
     Active Substance: LURASIDONE
     Indication: PSYCHOTIC DISORDER
     Dosage: INCREASED UP TO 150 MG/DAY, RATED TO THE DOSAGE OF 120 MG/DAY
     Route: 048
  2. CARBAMAZEPINE. [Interacting]
     Active Substance: CARBAMAZEPINE
     Indication: PSYCHOTIC DISORDER
     Dosage: ADDED AT A FINAL DOSE OF 800 MG/DAY
  3. CARIPRAZINE [Concomitant]
     Active Substance: CARIPRAZINE
  4. HALOPERIDOL. [Suspect]
     Active Substance: HALOPERIDOL
     Indication: PSYCHOTIC DISORDER
     Dosage: REDUCTION FROM 9 TO 2 MG/DAY (UP TO 6 MG/DAY)
  5. OLANZAPINE. [Suspect]
     Active Substance: OLANZAPINE
     Indication: PSYCHOTIC DISORDER

REACTIONS (4)
  - Drug ineffective [Unknown]
  - Withdrawal syndrome [Recovering/Resolving]
  - Drug interaction [Unknown]
  - Central nervous system lesion [Recovered/Resolved]
